FAERS Safety Report 4509744-4 (Version None)
Quarter: 2004Q4

REPORT INFORMATION
  Report Type: 
  Country: None (occurrence: None)
  Receive Date: 20041119
  Receipt Date: 20041117
  Transmission Date: 20050328
  Serious: Yes (Other)
  Sender: FDA-Public Use
  Company Number: 163-20785-04110408

PATIENT
  Age: 50 Year
  Sex: Female

DRUGS (1)
  1. THALOMID [Suspect]
     Indication: MULTIPLE MYELOMA
     Dosage: 100 MG, DAILY, ORAL
     Route: 048
     Dates: start: 20040721, end: 20041101

REACTIONS (2)
  - BLOOD HUMAN CHORIONIC GONADOTROPIN POSITIVE [None]
  - PREGNANCY TEST URINE POSITIVE [None]
